FAERS Safety Report 5356983-9 (Version None)
Quarter: 2007Q2

REPORT INFORMATION
  Report Type: 
  Country: None (occurrence: None)
  Receive Date: 20070612
  Receipt Date: 20070612
  Transmission Date: 20071010
  Serious: Yes (Other)
  Sender: FDA-Public Use
  Company Number: None

PATIENT
  Age: 44 Year
  Sex: Male

DRUGS (1)
  1. LISINOPRIL 20MG, WESTWARD, LOT 63253, EXP 11/10 [Suspect]
     Indication: HYPERTENSION
     Dosage: PO Q DAY
     Route: 048
     Dates: start: 20070503, end: 20070514

REACTIONS (1)
  - BLOOD PRESSURE INCREASED [None]
